FAERS Safety Report 10378401 (Version 1)
Quarter: 2014Q3

REPORT INFORMATION
  Report Type: Spontaneous
  Country: DE (occurrence: DE)
  Receive Date: 20140812
  Receipt Date: 20140812
  Transmission Date: 20150326
  Serious: Yes (Other)
  Sender: FDA-Public Use
  Company Number: DE-PFIZER INC-2014218255

PATIENT
  Age: 69 Year
  Sex: Female
  Weight: 43 kg

DRUGS (1)
  1. SORTIS [Suspect]
     Active Substance: ATORVASTATIN
     Indication: LIPID METABOLISM DISORDER
     Dosage: 10 MG, DAILY
     Route: 048
     Dates: start: 2005, end: 201102

REACTIONS (5)
  - Malaise [Recovered/Resolved]
  - Insomnia [Recovered/Resolved]
  - Paraesthesia [Recovered/Resolved]
  - Restless legs syndrome [Recovering/Resolving]
  - Neuralgia [Recovered/Resolved]

NARRATIVE: CASE EVENT DATE: 201009
